FAERS Safety Report 4650213-9 (Version None)
Quarter: 2005Q2

REPORT INFORMATION
  Report Type: 
  Country: None (occurrence: None)
  Receive Date: 20050428
  Receipt Date: 20050415
  Transmission Date: 20051028
  Serious: Yes (Hospitalization, Other)
  Sender: FDA-Public Use
  Company Number: KII-2005-0016107

PATIENT
  Age: 29 Year
  Sex: Female

DRUGS (4)
  1. HYDROMORPHONE HCL [Suspect]
     Dosage: ORAL
     Route: 048
  2. COCAINE (COCAINE) [Suspect]
  3. BENZODIAZEPINE DERIVATIVES [Suspect]
  4. OPIOIDS [Suspect]

REACTIONS (4)
  - AGITATION [None]
  - BLOOD CREATINE PHOSPHOKINASE ABNORMAL [None]
  - DYSKINESIA [None]
  - POLYSUBSTANCE ABUSE [None]
